FAERS Safety Report 24982271 (Version 2)
Quarter: 2025Q3

REPORT INFORMATION
  Report Type: Report from Study
  Country: US (occurrence: None)
  Receive Date: 20250218
  Receipt Date: 20250810
  Transmission Date: 20251021
  Serious: Yes (Other)
  Sender: ALEXION PHARMACEUTICALS
  Company Number: US-AstraZeneca-2009SE31699

PATIENT
  Age: 62 Year
  Sex: Female
  Weight: 87.09 kg

DRUGS (27)
  1. NEXIUM [Suspect]
     Active Substance: ESOMEPRAZOLE MAGNESIUM
  2. SYMBICORT [Suspect]
     Active Substance: BUDESONIDE\FORMOTEROL FUMARATE DIHYDRATE
  3. ATACAND [Suspect]
     Active Substance: CANDESARTAN CILEXETIL
     Dosage: 4 MILLIGRAM, QD
  4. ATACAND [Suspect]
     Active Substance: CANDESARTAN CILEXETIL
  5. ATACAND [Suspect]
     Active Substance: CANDESARTAN CILEXETIL
     Dosage: 4 MILLIGRAM, BID
  6. CRESTOR [Suspect]
     Active Substance: ROSUVASTATIN CALCIUM
     Indication: Hypercholesterolaemia
  7. TYLENOL [Suspect]
     Active Substance: ACETAMINOPHEN
  8. AZITHROMYCIN [Suspect]
     Active Substance: AZITHROMYCIN
     Route: 065
  9. ALBUTEROL SULFATE [Concomitant]
     Active Substance: ALBUTEROL SULFATE
  10. ALBUTEROL SULFATE [Concomitant]
     Active Substance: ALBUTEROL SULFATE
  11. ASPIRIN [Concomitant]
     Active Substance: ASPIRIN
  12. CALCIUM\VITAMIN D [Concomitant]
     Active Substance: CALCIUM\VITAMIN D
  13. DEXTROMETHORPHAN [Concomitant]
     Active Substance: DEXTROMETHORPHAN
  14. FISH OIL [Concomitant]
     Active Substance: FISH OIL
  15. FLUTICASONE [Concomitant]
     Active Substance: FLUTICASONE
  16. JANUVIA [Concomitant]
     Active Substance: SITAGLIPTIN PHOSPHATE
  17. LASIX [Concomitant]
     Active Substance: FUROSEMIDE
  18. UNSPECIFIED INGREDIENT [Concomitant]
     Active Substance: UNSPECIFIED INGREDIENT
  19. VITAMINS [Concomitant]
     Active Substance: VITAMINS
  20. NASACORT [Concomitant]
     Active Substance: TRIAMCINOLONE ACETONIDE
  21. NASONEX [Concomitant]
     Active Substance: MOMETASONE FUROATE
  22. POTASSIUM CHLORIDE [Concomitant]
     Active Substance: POTASSIUM CHLORIDE
  23. SYNTHROID [Concomitant]
     Active Substance: LEVOTHYROXINE SODIUM
  24. ZETIA [Concomitant]
     Active Substance: EZETIMIBE
  25. ZITHROMAX [Concomitant]
     Active Substance: AZITHROMYCIN DIHYDRATE
  26. ZYRTEC [Concomitant]
     Active Substance: CETIRIZINE HYDROCHLORIDE
  27. CLARITIN [Concomitant]
     Active Substance: LORATADINE

REACTIONS (19)
  - Lymphoma [Unknown]
  - Muscle spasms [Unknown]
  - Pain in extremity [Unknown]
  - Fatigue [Unknown]
  - Essential hypertension [Unknown]
  - Tinnitus [Unknown]
  - Gastrooesophageal reflux disease [Unknown]
  - Hypothyroidism [Unknown]
  - Obstructive sleep apnoea syndrome [Unknown]
  - Asthma [Unknown]
  - Hyperlipidaemia [Unknown]
  - Type 2 diabetes mellitus [Unknown]
  - Blood pressure increased [Unknown]
  - Myalgia [Unknown]
  - Intentional product misuse [Unknown]
  - Drug hypersensitivity [Unknown]
  - Drug hypersensitivity [Unknown]
  - Drug ineffective [Unknown]
  - Off label use [Unknown]

NARRATIVE: CASE EVENT DATE: 20091030
